FAERS Safety Report 7656970-1 (Version None)
Quarter: 2011Q3

REPORT INFORMATION
  Report Type: 
  Country: None (occurrence: None)
  Receive Date: 20110804
  Receipt Date: 20110801
  Transmission Date: 20111222
  Serious: Yes (Disabling, Other)
  Sender: FDA-Public Use
  Company Number: US-PFIZER INC-2011123078

PATIENT
  Sex: Female
  Weight: 77.098 kg

DRUGS (2)
  1. ADVIL LIQUI-GELS [Suspect]
     Indication: CHEST PAIN
     Dosage: UNK
     Route: 048
     Dates: end: 20110601
  2. ADVIL LIQUI-GELS [Suspect]
     Indication: PAIN
     Dosage: 400 MG, 2X/DAY
     Route: 048
     Dates: start: 20110602, end: 20110605

REACTIONS (10)
  - PARALYSIS [None]
  - CHEST PAIN [None]
  - DIZZINESS [None]
  - ANGIOPATHY [None]
  - NAUSEA [None]
  - VOMITING [None]
  - FEELING ABNORMAL [None]
  - PAIN [None]
  - ABDOMINAL PAIN UPPER [None]
  - MUSCLE SPASMS [None]
